FAERS Safety Report 24988176 (Version 1)
Quarter: 2025Q1

REPORT INFORMATION
  Report Type: Spontaneous
  Country: MX (occurrence: MX)
  Receive Date: 20250220
  Receipt Date: 20250220
  Transmission Date: 20250408
  Serious: Yes (Death, Hospitalization, Other)
  Sender: NOVO NORDISK
  Company Number: MX-NOVOPROD-1372538

PATIENT
  Age: 71 Year
  Sex: Male
  Weight: 79 kg

DRUGS (9)
  1. NOVOEIGHT [Suspect]
     Active Substance: ANTIHEMOPHILIC FACTOR, HUMAN RECOMBINANT
     Dosage: 2000 IU, BIW
     Route: 042
  2. NOVOEIGHT [Suspect]
     Active Substance: ANTIHEMOPHILIC FACTOR, HUMAN RECOMBINANT
     Indication: Factor VIII deficiency
     Dosage: 2000 IU, BIW(PRODUCT START DATE: APPROXIMATELY 3 YEARS AGO)
     Route: 042
     Dates: start: 2022
  3. FINASTERIDE [Concomitant]
     Active Substance: FINASTERIDE
     Indication: Prostatic disorder
     Route: 048
     Dates: start: 2020
  4. TAMSULOSIN [Concomitant]
     Active Substance: TAMSULOSIN
     Indication: Prostatic disorder
     Route: 048
     Dates: start: 2020
  5. TOLTERODINE [Concomitant]
     Active Substance: TOLTERODINE
     Indication: Prostatic disorder
     Route: 048
     Dates: start: 2020
  6. SULFASALAZINE [Concomitant]
     Active Substance: SULFASALAZINE
     Indication: Gastrointestinal disorder
     Route: 048
  7. LEVOTHYROXINE SODIUM [Concomitant]
     Active Substance: LEVOTHYROXINE SODIUM
     Indication: Hypothyroidism
     Dosage: 100 ?G, QD (PRODUCT START DATE: APPROXIMATELY 4 YEARS AGO)  MONDAY, WEDNESDAY, AND FRIDAY, ONE AND A
     Route: 048
     Dates: start: 2021
  8. FUROSEMIDE [Concomitant]
     Active Substance: FUROSEMIDE
     Indication: Urinary tract disorder
     Route: 048
     Dates: start: 2024
  9. SIMOCTOCOG ALFA [Concomitant]

REACTIONS (5)
  - Gastrointestinal haemorrhage [Fatal]
  - Primary progressive aphasia [Fatal]
  - Septic shock [Fatal]
  - Pneumonia aspiration [Fatal]
  - Adenocarcinoma gastric [Fatal]

NARRATIVE: CASE EVENT DATE: 20230101
